FAERS Safety Report 8780602 (Version 1)
Quarter: 2012Q4

REPORT INFORMATION
  Report Type: 
  Country: US (occurrence: US)
  Receive Date: 20120913
  Receipt Date: 20120913
  Transmission Date: 20130627
  Serious: Yes (Other)
  Sender: FDA-Public Use
  Company Number: US-PFIZER INC-2012225406

PATIENT
  Age: 53 Year
  Sex: Female
  Weight: 61.2 kg

DRUGS (6)
  1. NEURONTIN [Suspect]
     Indication: FIBROMYALGIA
     Dosage: UNK
     Route: 048
     Dates: start: 200804
  2. NEURONTIN [Suspect]
     Indication: NERVE INJURY
  3. NORVASC [Concomitant]
     Dosage: UNK
  4. PREMARIN [Concomitant]
     Dosage: UNK
  5. LIPITOR [Concomitant]
     Dosage: UNK
  6. CELEBREX [Concomitant]
     Dosage: UNK

REACTIONS (11)
  - Activities of daily living impaired [Unknown]
  - Fatigue [Unknown]
  - Nausea [Unknown]
  - Drug hypersensitivity [Unknown]
  - Somnolence [Unknown]
  - Impaired work ability [Unknown]
  - Headache [Unknown]
  - Lethargy [Unknown]
  - Pain [Unknown]
  - Gait disturbance [Unknown]
  - Thinking abnormal [Unknown]
